FAERS Safety Report 6494713-8 (Version None)
Quarter: 2009Q4

REPORT INFORMATION
  Report Type: 
  Country: None (occurrence: None)
  Receive Date: 20091214
  Receipt Date: 20090324
  Transmission Date: 20100525
  Serious: No
  Sender: FDA-Public Use
  Company Number: US-BRISTOL-MYERS SQUIBB COMPANY-14549299

PATIENT
  Age: 54 Year
  Sex: Female

DRUGS (3)
  1. ABILIFY [Suspect]
     Indication: MAJOR DEPRESSION
     Dosage: 07OCT08:2.5MG,INCREASED ON 25OCT08:5MG;OCT08 INTERRUPTED;03FEB2009:RESTARTED AT 2.5MG.
     Route: 048
     Dates: start: 20081007
  2. CYMBALTA [Suspect]
     Dosage: DECREASED TO 30 MG QD.
  3. VISTARIL [Suspect]
     Dosage: AT BED TIME.

REACTIONS (3)
  - ATAXIA [None]
  - DIZZINESS [None]
  - FALL [None]
